FAERS Safety Report 7285422-6 (Version None)
Quarter: 2011Q1

REPORT INFORMATION
  Report Type: 
  Country: None (occurrence: None)
  Receive Date: 20110121
  Receipt Date: 20060907
  Transmission Date: 20110831
  Serious: No
  Sender: FDA-Public Use
  Company Number: 070

PATIENT
  Sex: Male
  Weight: 87.0906 kg

DRUGS (3)
  1. COGENTIN [Concomitant]
  2. FAZACLO ODT [Suspect]
     Indication: SCHIZOPHRENIA
     Dosage: 75 MG PO DAILY
     Route: 048
     Dates: start: 20060817, end: 20060824
  3. INDERAL [Concomitant]

REACTIONS (1)
  - ELECTROCARDIOGRAM T WAVE INVERSION [None]
